FAERS Safety Report 24698265 (Version 1)
Quarter: 2024Q4

REPORT INFORMATION
  Report Type: Spontaneous
  Country: US (occurrence: US)
  Receive Date: 20241204
  Receipt Date: 20241204
  Transmission Date: 20250114
  Serious: No
  Sender: BRISTOL-MYERS SQUIBB COMPANY
  Company Number: US-BRISTOL-MYERS SQUIBB COMPANY-2024-188121

PATIENT
  Age: 59 Year
  Sex: Male
  Weight: 89.81 kg

DRUGS (34)
  1. REVLIMID [Suspect]
     Active Substance: LENALIDOMIDE
     Indication: Plasma cell myeloma
     Dosage: FREQUENCY CYCLE - FOR 28 DAYS.
     Route: 048
     Dates: start: 20231205
  2. REVLIMID [Suspect]
     Active Substance: LENALIDOMIDE
     Route: 048
     Dates: start: 20231124
  3. REVLIMID [Suspect]
     Active Substance: LENALIDOMIDE
     Route: 048
     Dates: start: 20231127, end: 20231205
  4. REVLIMID [Suspect]
     Active Substance: LENALIDOMIDE
     Dosage: FREQUENCY CYCLE - FOR 28 DAYS.
     Route: 048
     Dates: start: 20231222
  5. REVLIMID [Suspect]
     Active Substance: LENALIDOMIDE
     Dosage: FREQUENCY CYCLE - FOR 28 DAYS.
     Route: 048
     Dates: start: 20231227
  6. REVLIMID [Suspect]
     Active Substance: LENALIDOMIDE
     Dosage: FREQUENCY CYCLE - FOR 28 DAYS.
     Route: 048
     Dates: start: 20231228
  7. REVLIMID [Suspect]
     Active Substance: LENALIDOMIDE
     Dosage: FREQUENCY CYCLE - FOR 28 DAYS.
     Route: 048
     Dates: start: 20240201, end: 20240201
  8. REVLIMID [Suspect]
     Active Substance: LENALIDOMIDE
     Dosage: FREQUENCY CYCLE - FOR 28 DAYS.
     Route: 048
     Dates: start: 20240222
  9. REVLIMID [Suspect]
     Active Substance: LENALIDOMIDE
     Dosage: FREQUENCY CYCLE - FOR 28 DAYS.
     Route: 048
     Dates: start: 20240223, end: 20240227
  10. REVLIMID [Suspect]
     Active Substance: LENALIDOMIDE
     Dosage: FREQUENCY CYCLE - FOR 28 DAYS.
     Route: 048
     Dates: start: 20240326, end: 20240328
  11. REVLIMID [Suspect]
     Active Substance: LENALIDOMIDE
     Dosage: FREQUENCY CYCLE - FOR 28 DAYS.
     Route: 048
     Dates: start: 20240424, end: 20240424
  12. REVLIMID [Suspect]
     Active Substance: LENALIDOMIDE
     Dosage: FREQUENCY CYCLE - FOR 28 DAYS.
     Route: 048
     Dates: start: 20240521
  13. REVLIMID [Suspect]
     Active Substance: LENALIDOMIDE
     Dosage: FREQUENCY CYCLE - FOR 28 DAYS.
     Route: 048
     Dates: start: 20240523, end: 20240528
  14. REVLIMID [Suspect]
     Active Substance: LENALIDOMIDE
     Dosage: FREQUENCY CYCLE - FOR 28 DAYS.
     Route: 048
     Dates: start: 20240624, end: 20240626
  15. REVLIMID [Suspect]
     Active Substance: LENALIDOMIDE
     Dosage: FREQUENCY CYCLE - FOR 28 DAYS.
     Route: 048
     Dates: start: 20240723, end: 20240725
  16. REVLIMID [Suspect]
     Active Substance: LENALIDOMIDE
     Dosage: FREQUENCY CYCLE - FOR 28 DAYS.
     Route: 048
     Dates: start: 20240823, end: 20240827
  17. REVLIMID [Suspect]
     Active Substance: LENALIDOMIDE
     Dosage: FREQUENCY CYCLE - FOR 28 DAYS.
     Route: 048
     Dates: start: 20240919
  18. REVLIMID [Suspect]
     Active Substance: LENALIDOMIDE
     Dosage: FREQUENCY CYCLE - FOR 28 DAYS.
     Route: 048
     Dates: start: 20240923, end: 20240925
  19. REVLIMID [Suspect]
     Active Substance: LENALIDOMIDE
     Dosage: FREQUENCY CYCLE - FOR 28 DAYS.
     Route: 048
     Dates: start: 20241024, end: 20241028
  20. REVLIMID [Suspect]
     Active Substance: LENALIDOMIDE
     Dosage: FREQUENCY CYCLE - FOR 28 DAYS.
     Route: 048
     Dates: start: 20241121
  21. SULFAMETHOXAZOLE\TRIMETHOPRIM [Concomitant]
     Active Substance: SULFAMETHOXAZOLE\TRIMETHOPRIM
     Indication: Product used for unknown indication
  22. VITAMINS [Concomitant]
     Active Substance: VITAMINS
     Indication: Product used for unknown indication
  23. VITAMIN D3 [Concomitant]
     Active Substance: CHOLECALCIFEROL
     Indication: Product used for unknown indication
  24. FLUCONAZOLE [Concomitant]
     Active Substance: FLUCONAZOLE
     Indication: Product used for unknown indication
  25. PROCRIT [Concomitant]
     Active Substance: ERYTHROPOIETIN
     Indication: Product used for unknown indication
     Dosage: 40000UNITS/ML
  26. DEXAMETHASONE [Concomitant]
     Active Substance: DEXAMETHASONE
     Indication: Product used for unknown indication
     Route: 048
  27. ACETAMINOPHEN\HYDROCODONE [Concomitant]
     Active Substance: ACETAMINOPHEN\HYDROCODONE
     Indication: Product used for unknown indication
  28. ERGOCALCIFEROL [Concomitant]
     Active Substance: ERGOCALCIFEROL
     Indication: Product used for unknown indication
  29. ONDANSETRON [Concomitant]
     Active Substance: ONDANSETRON
     Indication: Product used for unknown indication
  30. ALFUZOSIN HYDROCHLORIDE [Concomitant]
     Active Substance: ALFUZOSIN HYDROCHLORIDE
     Indication: Product used for unknown indication
     Dosage: ER
  31. OMEPRAZOLE [Concomitant]
     Active Substance: OMEPRAZOLE
     Indication: Product used for unknown indication
     Dosage: DR
  32. ATORVASTATIN CALCIUM [Concomitant]
     Active Substance: ATORVASTATIN CALCIUM
     Indication: Product used for unknown indication
  33. PROCHLORPERAZINE MALEATE [Concomitant]
     Active Substance: PROCHLORPERAZINE MALEATE
     Indication: Product used for unknown indication
  34. ACYCLOVIR [Concomitant]
     Active Substance: ACYCLOVIR
     Indication: Product used for unknown indication

REACTIONS (1)
  - Diarrhoea [Unknown]

NARRATIVE: CASE EVENT DATE: 20231210
